FAERS Safety Report 13526099 (Version 3)
Quarter: 2020Q3

REPORT INFORMATION
  Report Type: Report from Study
  Country: CA (occurrence: CA)
  Receive Date: 20170509
  Receipt Date: 20180824
  Transmission Date: 20201104
  Serious: Yes (Hospitalization)
  Sender: FDA-Public Use
  Company Number: CA-ASTRAZENECA-2017SE33831

PATIENT
  Age: 23870 Day
  Sex: Male

DRUGS (29)
  1. TREMELIMUMAB. [Suspect]
     Active Substance: TREMELIMUMAB
     Indication: BLADDER TRANSITIONAL CELL CARCINOMA
     Route: 042
     Dates: start: 20170116, end: 20170116
  2. HYDROMORPH CONTIN [Concomitant]
     Active Substance: HYDROMORPHONE
     Indication: SCIATICA
     Route: 048
     Dates: start: 20170223
  3. MEDI4736 [Suspect]
     Active Substance: DURVALUMAB
     Indication: BLADDER TRANSITIONAL CELL CARCINOMA
     Route: 042
     Dates: start: 20170315, end: 20170503
  4. DETROL LA [Concomitant]
     Active Substance: TOLTERODINE TARTRATE
     Indication: HYPERTONIC BLADDER
     Route: 048
  5. LATANOPROST. [Concomitant]
     Active Substance: LATANOPROST
     Indication: GLAUCOMA
     Route: 047
  6. ASA [Concomitant]
     Active Substance: ASPIRIN
     Indication: CORONARY ARTERY DISEASE
     Route: 048
     Dates: end: 20170404
  7. NAPROSYN [Concomitant]
     Active Substance: NAPROXEN
     Indication: PAIN
     Route: 048
     Dates: start: 20170215
  8. HYDROMORPH CONTIN [Concomitant]
     Active Substance: HYDROMORPHONE
     Indication: PAIN
     Route: 048
     Dates: start: 20170223
  9. BRIMONIDINE [Concomitant]
     Active Substance: BRIMONIDINE TARTRATE
     Indication: GLAUCOMA
     Route: 047
     Dates: start: 20170225
  10. TREMELIMUMAB. [Suspect]
     Active Substance: TREMELIMUMAB
     Indication: BLADDER TRANSITIONAL CELL CARCINOMA
     Route: 042
     Dates: start: 20170215, end: 20170215
  11. LIPITOR [Concomitant]
     Active Substance: ATORVASTATIN CALCIUM
     Indication: DYSLIPIDAEMIA
     Route: 048
     Dates: end: 20170402
  12. NAPROSYN [Concomitant]
     Active Substance: NAPROXEN
     Indication: SCIATICA
     Route: 048
     Dates: start: 20170215
  13. TYLENOL [Concomitant]
     Active Substance: ACETAMINOPHEN
     Indication: PAIN
     Dosage: 650.0MG AS REQUIRED
     Route: 048
  14. TREMELIMUMAB. [Suspect]
     Active Substance: TREMELIMUMAB
     Indication: BLADDER TRANSITIONAL CELL CARCINOMA
     Route: 042
     Dates: start: 20170315, end: 20170503
  15. OMEGA?3 ACIDS [Concomitant]
     Active Substance: OMEGA-3 FATTY ACIDS
     Indication: NUTRITIONAL SUPPLEMENTATION
     Route: 048
  16. VITAMIN D2 [Concomitant]
     Active Substance: ERGOCALCIFEROL
     Indication: NUTRITIONAL SUPPLEMENTATION
     Route: 048
  17. OXAZEPAM. [Concomitant]
     Active Substance: OXAZEPAM
     Indication: INSOMNIA
     Dosage: 15.0MG AS REQUIRED
     Route: 048
     Dates: start: 20170111
  18. METOCLOPRAMIDE. [Concomitant]
     Active Substance: METOCLOPRAMIDE
     Indication: NAUSEA
     Dosage: 10.0MG AS REQUIRED
     Route: 048
     Dates: start: 20170111
  19. METOCLOPRAMIDE. [Concomitant]
     Active Substance: METOCLOPRAMIDE
     Indication: VOMITING
     Dosage: 10.0MG AS REQUIRED
     Route: 048
     Dates: start: 20170111
  20. HYDROMORPH [Concomitant]
     Active Substance: HYDROMORPHONE
     Indication: PAIN
     Dosage: 1.0MG AS REQUIRED
     Route: 048
     Dates: start: 20170215
  21. HYDROMORPH [Concomitant]
     Active Substance: HYDROMORPHONE
     Indication: SCIATICA
     Dosage: 1.0MG AS REQUIRED
     Route: 048
     Dates: start: 20170215
  22. MEDI4736 [Suspect]
     Active Substance: DURVALUMAB
     Indication: BLADDER TRANSITIONAL CELL CARCINOMA
     Route: 042
     Dates: start: 20170116, end: 20170116
  23. MEDI4736 [Suspect]
     Active Substance: DURVALUMAB
     Indication: BLADDER TRANSITIONAL CELL CARCINOMA
     Route: 042
     Dates: start: 20170215, end: 20170215
  24. ALPHAGAN P [Concomitant]
     Active Substance: BRIMONIDINE TARTRATE
     Indication: GLAUCOMA
     Route: 047
  25. TYLENOL [Concomitant]
     Active Substance: ACETAMINOPHEN
     Indication: SCIATICA
     Dosage: 650.0MG AS REQUIRED
     Route: 048
  26. GRAVOL [Concomitant]
     Active Substance: DIMENHYDRINATE
     Indication: VOMITING
     Dosage: 50.0MG AS REQUIRED
     Route: 054
     Dates: start: 20170111
  27. DORZOLAMIDE [Concomitant]
     Active Substance: DORZOLAMIDE
     Indication: GLAUCOMA
     Route: 047
  28. OXAZEPAM. [Concomitant]
     Active Substance: OXAZEPAM
     Indication: ANXIETY
     Dosage: 15.0MG AS REQUIRED
     Route: 048
     Dates: start: 20170111
  29. GRAVOL [Concomitant]
     Active Substance: DIMENHYDRINATE
     Indication: NAUSEA
     Dosage: 50.0MG AS REQUIRED
     Route: 054
     Dates: start: 20170111

REACTIONS (1)
  - Gastritis erosive [Recovered/Resolved]

NARRATIVE: CASE EVENT DATE: 20170329
